FAERS Safety Report 10022848 (Version 1)
Quarter: 2014Q1

REPORT INFORMATION
  Report Type: Spontaneous
  Country: US (occurrence: US)
  Receive Date: 20140319
  Receipt Date: 20140319
  Transmission Date: 20141002
  Serious: No
  Sender: FDA-Public Use
  Company Number: US-PFIZER INC-2014077951

PATIENT
  Age: 94 Year
  Sex: Female

DRUGS (8)
  1. ACCUPRIL [Suspect]
     Dosage: UNK
  2. DEXILANT [Suspect]
     Dosage: UNK
  3. MEDIPREN [Suspect]
     Dosage: UNK
  4. MEVACOR [Suspect]
     Dosage: UNK
  5. MIACALCIN [Suspect]
     Dosage: UNK
  6. MOBIC [Suspect]
     Dosage: UNK
  7. VIOXX [Suspect]
     Dosage: UNK
  8. VOLTAREN [Suspect]
     Dosage: UNK

REACTIONS (1)
  - Drug hypersensitivity [Unknown]
